FAERS Safety Report 10074129 (Version 2)
Quarter: 2014Q2

REPORT INFORMATION
  Report Type: Spontaneous
  Country: US (occurrence: US)
  Receive Date: 20140413
  Receipt Date: 20140421
  Transmission Date: 20141212
  Serious: No
  Sender: FDA-Public Use
  Company Number: US-009507513-1404USA006363

PATIENT
  Sex: 0
  Weight: 54.42 kg

DRUGS (1)
  1. NEXPLANON [Suspect]
     Dosage: UNK
     Route: 059
     Dates: start: 20140407

REACTIONS (5)
  - Device difficult to use [Unknown]
  - Medical device complication [Unknown]
  - Medical device complication [Unknown]
  - Product quality issue [Unknown]
  - No adverse event [Unknown]
